FAERS Safety Report 4945271-8 (Version None)
Quarter: 2006Q1

REPORT INFORMATION
  Report Type: 
  Country: None (occurrence: None)
  Receive Date: 20060316
  Receipt Date: 20060308
  Transmission Date: 20060701
  Serious: Yes (Other)
  Sender: FDA-Public Use
  Company Number: PHFR2006GB01123

PATIENT
  Age: 50 Year
  Sex: Male

DRUGS (4)
  1. SABRIL [Suspect]
     Indication: EPILEPSY
     Route: 065
     Dates: start: 19980703, end: 20001228
  2. TEGRETOL [Suspect]
     Route: 065
  3. PHENYTOIN [Suspect]
     Route: 065
  4. TOPIRAMATE [Suspect]
     Route: 065

REACTIONS (1)
  - VISUAL FIELD DEFECT [None]
